FAERS Safety Report 12261469 (Version 2)
Quarter: 2016Q2

REPORT INFORMATION
  Report Type: Report from Study
  Country: SI (occurrence: SI)
  Receive Date: 20160413
  Receipt Date: 20160415
  Transmission Date: 20160815
  Serious: Yes (Hospitalization)
  Sender: FDA-Public Use
  Company Number: SI-ROCHE-1737296

PATIENT
  Age: 50 Year
  Sex: Female
  Weight: 110 kg

DRUGS (33)
  1. MAXITROL [Concomitant]
     Active Substance: DEXAMETHASONE\NEOMYCIN SULFATE\POLYMYXIN B SULFATE
     Route: 065
     Dates: start: 20141215, end: 20141222
  2. PHENOXYMETHYLPENICILLINUM [Concomitant]
     Indication: ACTINOMYCOSIS
     Dosage: 6000000 IE
     Route: 048
     Dates: start: 20131231, end: 20140306
  3. GENTAMICIN. [Concomitant]
     Active Substance: GENTAMICIN
     Indication: SKIN INFECTION
     Dosage: STRENGTH 1 MG/G
     Route: 065
     Dates: start: 20140207, end: 20140213
  4. PANTOPRAZOLE [Concomitant]
     Active Substance: PANTOPRAZOLE SODIUM
     Route: 065
     Dates: start: 20150402
  5. CALCIUM CARBONATE. [Concomitant]
     Active Substance: CALCIUM CARBONATE
     Indication: MUSCLE SPASMS
     Route: 065
     Dates: start: 20130530, end: 20130627
  6. CALCIUM CARBONATE. [Concomitant]
     Active Substance: CALCIUM CARBONATE
     Indication: MUSCLE SPASMS
     Route: 065
     Dates: start: 20130628, end: 20130918
  7. MAXITROL [Concomitant]
     Active Substance: DEXAMETHASONE\NEOMYCIN SULFATE\POLYMYXIN B SULFATE
     Indication: BLEPHARITIS
     Route: 065
     Dates: start: 20130725, end: 20131016
  8. ALGINIC ACID [Concomitant]
     Active Substance: ALGINIC ACID
     Indication: ABSCESS LIMB
     Dosage: WOUND DRESSING
     Route: 065
     Dates: start: 20141002, end: 20141003
  9. AMOXICILLIN. [Concomitant]
     Active Substance: AMOXICILLIN
     Route: 065
     Dates: start: 20150226, end: 20150302
  10. CIPROFLOXACIN. [Concomitant]
     Active Substance: CIPROFLOXACIN
     Indication: SKIN INFECTION
     Route: 065
     Dates: start: 20131123, end: 20131206
  11. TOBRAMICIN [Concomitant]
     Dosage: STRENGTH 3 MG/ML
     Route: 065
     Dates: start: 20140220, end: 20140228
  12. CLAVULANIC ACID [Concomitant]
     Active Substance: CLAVULANIC ACID
     Indication: ABSCESS LIMB
     Route: 065
     Dates: start: 20141003, end: 20141007
  13. MAGNESIUM CITRATE. [Concomitant]
     Active Substance: MAGNESIUM CITRATE
     Route: 065
     Dates: start: 20130725, end: 20131220
  14. TOBRAMICIN [Concomitant]
     Indication: SKIN INFECTION
     Dosage: STRENGTH 3 MG/G DOSE: 2-3X1.5 CM UNG
     Route: 065
     Dates: start: 20131025, end: 20131027
  15. AMOXICILLIN. [Concomitant]
     Active Substance: AMOXICILLIN
     Route: 065
     Dates: start: 20131114, end: 20131122
  16. PRENESSA [Concomitant]
     Active Substance: PERINDOPRIL
     Indication: HYPERTENSION
     Route: 065
     Dates: start: 20150621
  17. VISMODEGIB [Suspect]
     Active Substance: VISMODEGIB
     Indication: BASAL CELL CARCINOMA
     Dosage: LAST DOSE PRIOR TO SAE ON 28/MAY/2015
     Route: 048
     Dates: start: 20130429
  18. AMLODIPIN [Concomitant]
     Active Substance: AMLODIPINE BESYLATE
     Indication: HYPERTENSION
     Route: 065
     Dates: start: 200801, end: 20150620
  19. PERINDOPRIL [Concomitant]
     Active Substance: PERINDOPRIL
     Indication: HYPERTENSION
     Route: 065
     Dates: start: 200801, end: 20150620
  20. ESOMEPRAZOL [Concomitant]
     Active Substance: ESOMEPRAZOLE
     Indication: NAUSEA
     Route: 065
     Dates: start: 20130530, end: 20130918
  21. CALCIUM CARBONATE. [Concomitant]
     Active Substance: CALCIUM CARBONATE
     Route: 065
     Dates: start: 20130919, end: 20131220
  22. DOXYCYCLINE. [Concomitant]
     Active Substance: DOXYCYCLINE
     Indication: BLEPHARITIS
     Route: 065
     Dates: start: 20130627, end: 20130905
  23. RIVANOL [Concomitant]
     Active Substance: ETHACRIDINE LACTATE
     Indication: SKIN INFECTION
     Route: 065
     Dates: start: 20130927, end: 20130927
  24. RIVANOL [Concomitant]
     Active Substance: ETHACRIDINE LACTATE
     Route: 065
     Dates: start: 20131108, end: 20131108
  25. TOBRAMICIN [Concomitant]
     Dosage: STRENGTH 3 MG/G DOSE: 1X1.5 CM UNG
     Route: 065
     Dates: start: 20140526, end: 20140528
  26. GENTAMICIN. [Concomitant]
     Active Substance: GENTAMICIN
     Dosage: STRENGTH 1 MG/G
     Route: 065
     Dates: start: 20140530, end: 20140608
  27. TIZANIDINA [Concomitant]
     Indication: MUSCLE SPASMS
     Route: 065
     Dates: start: 20150110, end: 20150620
  28. FUSIDIC ACID [Concomitant]
     Active Substance: FUSIDIC ACID
     Indication: ABSCESS LIMB
     Route: 065
     Dates: start: 20141003, end: 20141017
  29. CLAVULANIC ACID [Concomitant]
     Active Substance: CLAVULANIC ACID
     Indication: UPPER RESPIRATORY TRACT INFECTION
     Route: 065
     Dates: start: 20150226, end: 20150302
  30. AMOXICILLIN. [Concomitant]
     Active Substance: AMOXICILLIN
     Indication: UPPER RESPIRATORY TRACT INFECTION
     Route: 065
     Dates: start: 20150112, end: 20150119
  31. MAGNESIUM CITRATE. [Concomitant]
     Active Substance: MAGNESIUM CITRATE
     Indication: MUSCLE SPASMS
     Route: 065
     Dates: start: 20130530, end: 20130724
  32. AMOKSICILLIN [Concomitant]
     Indication: ABSCESS LIMB
     Route: 065
     Dates: start: 20141003, end: 20141007
  33. LOPERAMIDE HYDROCHLORIDE. [Concomitant]
     Active Substance: LOPERAMIDE HYDROCHLORIDE
     Indication: DIARRHOEA
     Route: 065
     Dates: start: 20150118

REACTIONS (1)
  - Atrioventricular block second degree [Recovered/Resolved]

NARRATIVE: CASE EVENT DATE: 20160113
